FAERS Safety Report 10174221 (Version 2)
Quarter: 2014Q2

REPORT INFORMATION
  Report Type: Spontaneous
  Country: IE (occurrence: IE)
  Receive Date: 20140515
  Receipt Date: 20140603
  Transmission Date: 20141212
  Serious: Yes (Hospitalization, Other)
  Sender: FDA-Public Use
  Company Number: IE-ACTAVIS-2014-10056

PATIENT
  Age: 57 Year
  Sex: Female

DRUGS (2)
  1. CLARITHROMYCIN (UNKNOWN) [Suspect]
     Indication: LOWER RESPIRATORY TRACT INFECTION
     Dosage: 500 MG, TID
     Route: 065
  2. DULOXETINE (UNKNOWN) [Suspect]
     Indication: NEURALGIA
     Dosage: 60 MG, DAILY
     Route: 065

REACTIONS (2)
  - Mania [Recovered/Resolved]
  - Drug withdrawal syndrome [Recovered/Resolved]
